FAERS Safety Report 9641990 (Version 2)
Quarter: 2013Q4

REPORT INFORMATION
  Report Type: Spontaneous
  Country: US (occurrence: US)
  Receive Date: 20131023
  Receipt Date: 20131023
  Transmission Date: 20140711
  Serious: Yes (Other)
  Sender: FDA-Public Use
  Company Number: US-UCBSA-040189

PATIENT
  Age: 32 Year
  Sex: Female

DRUGS (2)
  1. CIMZIA [Suspect]
     Indication: CROHN^S DISEASE
     Dates: start: 20100624
  2. CIMZIA [Suspect]
     Indication: CROHN^S DISEASE
     Dates: start: 20110915

REACTIONS (3)
  - Surgery [Unknown]
  - Post procedural infection [Unknown]
  - Inappropriate schedule of drug administration [Unknown]
